FAERS Safety Report 8333771 (Version 3)
Quarter: 2013Q4

REPORT INFORMATION
  Report Type: Spontaneous
  Country: US (occurrence: US)
  Receive Date: 20120112
  Receipt Date: 20131230
  Transmission Date: 20140711
  Serious: Yes (Hospitalization)
  Sender: FDA-Public Use
  Company Number: US-BAYER-2012-002820

PATIENT
  Age: 23 Year
  Sex: Female
  Weight: 110 kg

DRUGS (8)
  1. YAZ [Suspect]
     Dosage: UNK
     Dates: start: 200907, end: 200908
  2. AMOXICILLIN [Concomitant]
     Dosage: 875 MG, UNK
  3. DILAUDID [Concomitant]
     Indication: PAIN IN EXTREMITY
  4. VITAMIN B12 [Concomitant]
     Dosage: UNK UNK, QD
  5. FERROUS SULFATE [Concomitant]
     Dosage: 325 MG, TID
  6. PERCOCET [Concomitant]
     Indication: PAIN
     Dosage: 5/325 MG 2TABS EVERY 4 HOURS AS NEEDED
  7. APRI [Concomitant]
  8. NECON [Concomitant]

REACTIONS (7)
  - Pulmonary embolism [None]
  - Deep vein thrombosis [None]
  - Deep vein thrombosis [None]
  - Pelvic venous thrombosis [None]
  - Pain [None]
  - Injury [None]
  - Mental disorder [None]
